FAERS Safety Report 4668321-5 (Version None)
Quarter: 2005Q2

REPORT INFORMATION
  Report Type: 
  Country: None (occurrence: None)
  Receive Date: 20050523
  Receipt Date: 20050315
  Transmission Date: 20051028
  Serious: Yes (Other)
  Sender: FDA-Public Use
  Company Number: PHEH2005US03176

PATIENT
  Age: 58 Year
  Sex: Female
  Weight: 112 kg

DRUGS (4)
  1. ZOMETA [Suspect]
     Indication: BREAST CANCER METASTATIC
     Dosage: 4MG Q4W
     Route: 042
     Dates: start: 20020917, end: 20041130
  2. TAXOL [Concomitant]
  3. TAXOTERE [Concomitant]
  4. FASLODEX [Concomitant]

REACTIONS (2)
  - OSTEONECROSIS [None]
  - RADIATION INJURY [None]
